FAERS Safety Report 5259561-5 (Version None)
Quarter: 2007Q1

REPORT INFORMATION
  Report Type: 
  Country: None (occurrence: None)
  Receive Date: 20070306
  Receipt Date: 20070226
  Transmission Date: 20070707
  Serious: Yes (Hospitalization)
  Sender: FDA-Public Use
  Company Number: 2007AL000803

PATIENT
  Age: 46 Year
  Sex: Male

DRUGS (4)
  1. METFORMIN HCL [Suspect]
     Dosage: 56 GM;X1;PO
     Route: 048
  2. ALCOHOL [Concomitant]
  3. RAMIPRIL [Concomitant]
  4. NORADRENALINE [Concomitant]

REACTIONS (26)
  - ABDOMINAL PAIN LOWER [None]
  - APNOEA [None]
  - BLOOD GLUCOSE INCREASED [None]
  - BLOOD PRESSURE DECREASED [None]
  - BODY TEMPERATURE DECREASED [None]
  - CARDIAC ARREST [None]
  - CARDIAC DISORDER [None]
  - COMPARTMENT SYNDROME [None]
  - DEHYDRATION [None]
  - DIARRHOEA [None]
  - DRUG TOXICITY [None]
  - HAEMODIALYSIS [None]
  - HAEMODYNAMIC INSTABILITY [None]
  - HYPOTENSION [None]
  - INTENTIONAL OVERDOSE [None]
  - LACTIC ACIDOSIS [None]
  - LEG AMPUTATION [None]
  - METABOLIC ACIDOSIS [None]
  - PALLOR [None]
  - PARTIAL SEIZURES [None]
  - RENAL IMPAIRMENT [None]
  - RESPIRATORY RATE INCREASED [None]
  - RHABDOMYOLYSIS [None]
  - SENSORY LOSS [None]
  - TACHYPNOEA [None]
  - VOMITING [None]
